FAERS Safety Report 15122786 (Version 2)
Quarter: 2019Q1

REPORT INFORMATION
  Report Type: Report from Study
  Country: US (occurrence: US)
  Receive Date: 20180709
  Receipt Date: 20190118
  Transmission Date: 20190417
  Serious: No
  Sender: FDA-Public Use
  Company Number: PHEH2018US026926

PATIENT
  Sex: Female

DRUGS (1)
  1. ENTRESTO [Suspect]
     Active Substance: SACUBITRIL\VALSARTAN
     Indication: CARDIAC FAILURE CONGESTIVE
     Dosage: UNK
     Route: 065

REACTIONS (14)
  - Trigeminal neuralgia [Unknown]
  - Cardiomegaly [Unknown]
  - Fibromyalgia [Unknown]
  - Oral disorder [Unknown]
  - Neuralgia [Unknown]
  - Speech disorder [Unknown]
  - Hypoaesthesia [Unknown]
  - Retinal disorder [Unknown]
  - Choking sensation [Unknown]
  - Dyspnoea [Unknown]
  - Dysphagia [Unknown]
  - Concomitant disease aggravated [Unknown]
  - Neck pain [Unknown]
  - Musculoskeletal stiffness [Unknown]
